FAERS Safety Report 12863356 (Version 1)
Quarter: 2016Q4

REPORT INFORMATION
  Report Type: Spontaneous
  Country: US (occurrence: US)
  Receive Date: 20161019
  Receipt Date: 20161019
  Transmission Date: 20170207
  Serious: No
  Sender: FDA-Public Use
  Company Number: US-OTSUKA-2016_019289

PATIENT
  Sex: Female
  Weight: 96.3 kg

DRUGS (5)
  1. VIIBRYD [Suspect]
     Active Substance: VILAZODONE HYDROCHLORIDE
     Indication: MAJOR DEPRESSION
     Dosage: STARTER PACK
     Route: 048
     Dates: start: 20160520
  2. VIIBRYD [Suspect]
     Active Substance: VILAZODONE HYDROCHLORIDE
     Dosage: 40 MG, DAILY DOSE
     Route: 048
  3. WELLBUTRIN [Concomitant]
     Active Substance: BUPROPION HYDROCHLORIDE
     Indication: MAJOR DEPRESSION
     Dosage: 300 MG, UNK
     Route: 048
     Dates: start: 2006
  4. REXULTI [Suspect]
     Active Substance: BREXPIPRAZOLE
     Indication: PRODUCT USED FOR UNKNOWN INDICATION
     Dosage: UNK
     Route: 065
     Dates: start: 20160520, end: 2016
  5. VIIBRYD [Suspect]
     Active Substance: VILAZODONE HYDROCHLORIDE
     Dosage: 20 MG, DAILY DOSE
     Route: 048
     Dates: start: 20160713

REACTIONS (8)
  - Paraesthesia [Unknown]
  - Feeling abnormal [Unknown]
  - Sleep paralysis [Unknown]
  - Tremor [Unknown]
  - Abnormal dreams [Recovered/Resolved]
  - Restlessness [Unknown]
  - Insomnia [Unknown]
  - Morbid thoughts [Recovered/Resolved]

NARRATIVE: CASE EVENT DATE: 2016
